FAERS Safety Report 18784376 (Version 35)
Quarter: 2021Q3

REPORT INFORMATION
  Report Type: Report from Study
  Country: MX (occurrence: MX)
  Receive Date: 20210125
  Receipt Date: 20210921
  Transmission Date: 20211014
  Serious: Yes (Hospitalization, Other)
  Sender: FDA-Public Use
  Company Number: MX-TAKEDA-MX202011122

PATIENT
  Age: 14 Year
  Sex: Male
  Weight: 15 kg

DRUGS (6)
  1. IDURSULFASE [Suspect]
     Active Substance: IDURSULFASE
     Indication: MUCOPOLYSACCHARIDOSIS II
     Dosage: 6 MILLIGRAM/3MILLILITER, 1 VIAL EVERY 7 DAYS
     Route: 042
     Dates: start: 20140814
  2. IDURSULFASE [Suspect]
     Active Substance: IDURSULFASE
     Dosage: 6 MILLIGRAM 1/WEEK
     Route: 042
     Dates: start: 20140514
  3. SALINE [SODIUM CHLORIDE] [Concomitant]
     Active Substance: SODIUM CHLORIDE
     Indication: PRODUCTIVE COUGH
     Dosage: UNK
     Route: 050
     Dates: start: 20210106, end: 20210108
  4. PARACETAMOL [Concomitant]
     Active Substance: ACETAMINOPHEN
     Indication: BODY TEMPERATURE ABNORMAL
     Dosage: UNK
     Route: 048
     Dates: start: 20210106, end: 20210109
  5. PARACETAMOL [Concomitant]
     Active Substance: ACETAMINOPHEN
     Indication: PYREXIA
  6. PARACETAMOL [Concomitant]
     Active Substance: ACETAMINOPHEN
     Indication: PAIN

REACTIONS (22)
  - Vascular device infection [Not Recovered/Not Resolved]
  - Dehydration [Unknown]
  - Pharyngitis [Not Recovered/Not Resolved]
  - Dizziness [Recovered/Resolved]
  - Illness [Not Recovered/Not Resolved]
  - Poor venous access [Not Recovered/Not Resolved]
  - Swelling [Unknown]
  - Dyspnoea [Unknown]
  - Body temperature abnormal [Not Recovered/Not Resolved]
  - Headache [Recovered/Resolved]
  - Influenza [Not Recovered/Not Resolved]
  - Underweight [Unknown]
  - Inappropriate schedule of product administration [Unknown]
  - Dysphagia [Unknown]
  - Product availability issue [Not Recovered/Not Resolved]
  - Device issue [Recovered/Resolved]
  - Product dose omission issue [Not Recovered/Not Resolved]
  - Sepsis [Unknown]
  - Pain [Recovered/Resolved]
  - Gastrostomy tube site complication [Not Recovered/Not Resolved]
  - Cough [Not Recovered/Not Resolved]
  - Therapy interrupted [Not Recovered/Not Resolved]

NARRATIVE: CASE EVENT DATE: 20200320
